FAERS Safety Report 9210942 (Version 2)
Quarter: 2013Q2

REPORT INFORMATION
  Report Type: Spontaneous
  Country: US (occurrence: US)
  Receive Date: 20130404
  Receipt Date: 20130408
  Transmission Date: 20140414
  Serious: Yes (Other)
  Sender: FDA-Public Use
  Company Number: PHHY2013US031335

PATIENT
  Age: 14 Year
  Sex: Female

DRUGS (2)
  1. DOCETAXEL [Suspect]
     Indication: CHEMOTHERAPY
     Dosage: 100 MG/M2 ON DAY 8
  2. GEMCITABINE [Suspect]
     Indication: CHEMOTHERAPY
     Dosage: 900 MG/M2, ON DAY 1 AND 8

REACTIONS (6)
  - Compartment syndrome [Recovered/Resolved]
  - Myositis [Recovered/Resolved]
  - Joint range of motion decreased [Recovered/Resolved]
  - Oedema peripheral [Recovered/Resolved]
  - Muscle oedema [Recovered/Resolved]
  - Pain in extremity [Recovered/Resolved]
